FAERS Safety Report 15214550 (Version 2)
Quarter: 2022Q3

REPORT INFORMATION
  Report Type: Spontaneous
  Country: DE (occurrence: DE)
  Receive Date: 20180730
  Receipt Date: 20220630
  Transmission Date: 20221027
  Serious: Yes (Hospitalization, Other)
  Sender: FDA-Public Use
  Company Number: None

PATIENT
  Sex: Male
  Weight: 70 kg

DRUGS (11)
  1. CARBOPLATIN [Suspect]
     Active Substance: CARBOPLATIN
     Indication: Lung neoplasm malignant
     Dosage: 300 MG/M2, QD DAILY DOSE: 300 MG/M2 MILLIGRAM(S)/SQ. METER EVERY 3 WEEKS
     Route: 042
     Dates: start: 20130318, end: 20130715
  2. PACLITAXEL [Suspect]
     Active Substance: PACLITAXEL
     Indication: Lung neoplasm malignant
     Dosage: 100 MG/M2, QD DAILY DOSE: 100 MG/M2 MILLIGRAM(S)/SQ. METER EVERY WEEKS
     Route: 042
     Dates: start: 20130318, end: 20130722
  3. CISPLATIN [Suspect]
     Active Substance: CISPLATIN
     Indication: Product used for unknown indication
     Dosage: 40 MG/M2, QD ON DAY 1 AND 8 OF EACH 3 WEEK CYCLE.
     Route: 042
     Dates: start: 20130121, end: 20130304
  4. PEMETREXED DISODIUM [Suspect]
     Active Substance: PEMETREXED DISODIUM
     Indication: Lung neoplasm malignant
     Dosage: 500 MG/M2, QD DAILY DOSE: 500 MG/M2 MILLIGRAM(S)/SQ. METER EVERY 3 WEEKS
     Route: 042
     Dates: start: 20130121, end: 20130218
  5. AVASTIN [Suspect]
     Active Substance: BEVACIZUMAB
     Indication: Lung adenocarcinoma
     Dosage: 15 MG/KG, QD DAILY DOSE: 15 MG/KG MILLIGRAM(S)/KILOGRAM EVERY 3 WEEKS
     Route: 042
     Dates: start: 20130225, end: 20130715
  6. BEVACIZUMAB [Suspect]
     Active Substance: BEVACIZUMAB
     Indication: Lung cancer metastatic
     Dosage: 15 MG/KG
     Route: 042
     Dates: start: 20130225, end: 20130715
  7. DEXAMETHASONE [Concomitant]
     Active Substance: DEXAMETHASONE
     Indication: Lung cancer metastatic
     Dosage: 8 MG, QD 8 MG, QD DAY 1, DAY 8, REPETITION DAY 22
     Route: 042
  8. GRANISETRON [Concomitant]
     Active Substance: GRANISETRON
     Indication: Premedication
     Dosage: 3 MG, QD 3 MG, DAY 1, DAY 8, REPETITION DAY 22
     Route: 042
  9. CLEMASTINE FUMARATE [Concomitant]
     Active Substance: CLEMASTINE FUMARATE
     Indication: Premedication
     Dosage: 2 MG, UNK
     Route: 042
  10. ALIZAPRIDE HYDROCHLORIDE [Concomitant]
     Active Substance: ALIZAPRIDE HYDROCHLORIDE
     Indication: Premedication
     Dosage: 50 MG, QD 50 MG, DAY 1, DAY 8, REPETITION DAY 22
     Route: 042
  11. RANITIDINE HYDROCHLORIDE [Concomitant]
     Active Substance: RANITIDINE HYDROCHLORIDE
     Indication: Product used for unknown indication
     Dosage: 50 MG, QD 50 MG, GIVEN ON DAY 1, 8 AND 15 OF CYCLE
     Route: 042

REACTIONS (4)
  - General physical health deterioration [Not Recovered/Not Resolved]
  - Leukopenia [Recovering/Resolving]
  - Tinnitus [Unknown]
  - Hypoacusis [Unknown]

NARRATIVE: CASE EVENT DATE: 20130225
